FAERS Safety Report 5272319-6 (Version None)
Quarter: 2007Q1

REPORT INFORMATION
  Report Type: 
  Country: None (occurrence: None)
  Receive Date: 20070320
  Receipt Date: 20070320
  Transmission Date: 20070707
  Serious: No
  Sender: FDA-Public Use
  Company Number: None

PATIENT
  Age: 33 Year
  Sex: Female
  Weight: 63.2 kg

DRUGS (2)
  1. MAXIPIME [Suspect]
     Indication: OSTEOMYELITIS
     Dosage: 1GM EVERY 12 HOURS IV
     Route: 042
     Dates: start: 20070223, end: 20070227
  2. STERILE WATER FOR INJECTION [Suspect]
     Dosage: 10ML

REACTIONS (2)
  - RASH MACULO-PAPULAR [None]
  - RASH PRURITIC [None]
